FAERS Safety Report 7335876-1 (Version None)
Quarter: 2011Q1

REPORT INFORMATION
  Report Type: 
  Country: None (occurrence: None)
  Receive Date: 20110307
  Receipt Date: 20110224
  Transmission Date: 20110831
  Serious: Yes (Other)
  Sender: FDA-Public Use
  Company Number: JP-JNJFOC-20110107766

PATIENT
  Sex: Female
  Weight: 54 kg

DRUGS (19)
  1. HUMALOG [Suspect]
     Dosage: 44 UT DAILY
     Route: 058
  2. REMICADE [Suspect]
     Route: 042
  3. REMICADE [Suspect]
     Route: 042
  4. HUMALOG [Suspect]
     Indication: TYPE 2 DIABETES MELLITUS
     Route: 058
  5. CELECOX [Concomitant]
     Route: 048
  6. PREDNISOLONE [Concomitant]
     Route: 048
  7. FERO-GRADUMET [Concomitant]
     Route: 048
  8. REMICADE [Suspect]
     Route: 042
  9. FOLIAMIN [Concomitant]
     Route: 048
  10. AZULFIDINE [Concomitant]
     Route: 048
  11. GASTER D [Concomitant]
     Route: 048
  12. TALION [Concomitant]
     Route: 048
  13. REMICADE [Suspect]
     Indication: RHEUMATOID ARTHRITIS
     Route: 042
  14. REMICADE [Suspect]
     Route: 042
  15. REMICADE [Suspect]
     Route: 042
  16. REMICADE [Suspect]
     Route: 042
  17. REMICADE [Suspect]
     Route: 042
  18. RHEUMATREX [Concomitant]
     Route: 048
  19. REMICADE [Suspect]
     Route: 042

REACTIONS (2)
  - HYPOGLYCAEMIC COMA [None]
  - PNEUMONIA ASPIRATION [None]
